FAERS Safety Report 18524034 (Version 2)
Quarter: 2020Q4

REPORT INFORMATION
  Report Type: Spontaneous
  Country: DE (occurrence: DE)
  Receive Date: 20201119
  Receipt Date: 20201211
  Transmission Date: 20210114
  Serious: Yes (Other)
  Sender: FDA-Public Use
  Company Number: DE-MYLANLABS-2020M1093908

PATIENT
  Age: 81 Year
  Sex: Male
  Weight: 62 kg

DRUGS (4)
  1. PHENPROCOUMON [Concomitant]
     Active Substance: PHENPROCOUMON
     Indication: ATRIAL FIBRILLATION
     Dosage: UNK
     Route: 048
     Dates: start: 20200914
  2. MARCUMAR [Suspect]
     Active Substance: PHENPROCOUMON
     Indication: ATRIAL FIBRILLATION
     Dosage: 1/4 TO 1/2 TABLETS
     Route: 048
     Dates: start: 20200914
  3. MARCUMAR [Interacting]
     Active Substance: PHENPROCOUMON
     Dosage: UNK
     Route: 048
  4. STIEPROX [Concomitant]
     Active Substance: CICLOPIROX OLAMINE
     Dosage: UNK

REACTIONS (4)
  - Drug interaction [Recovered/Resolved]
  - International normalised ratio decreased [Unknown]
  - Prothrombin time shortened [Unknown]
  - Drug ineffective [Unknown]

NARRATIVE: CASE EVENT DATE: 20200904
